FAERS Safety Report 6006701-6 (Version None)
Quarter: 2008Q4

REPORT INFORMATION
  Report Type: 
  Country: None (occurrence: None)
  Receive Date: 20081217
  Receipt Date: 20081211
  Transmission Date: 20090506
  Serious: Yes (Death, Life-Threatening, Hospitalization, Other)
  Sender: FDA-Public Use
  Company Number: JP-ELI_LILLY_AND_COMPANY-JP200811005852

PATIENT
  Sex: Male
  Weight: 51 kg

DRUGS (8)
  1. GEMZAR [Suspect]
     Indication: BILE DUCT CANCER RECURRENT
     Dosage: 1000 MG, OTHER
     Route: 042
     Dates: start: 20060927, end: 20080301
  2. GEMZAR [Suspect]
     Dosage: 800 MG, OTHER
     Route: 042
     Dates: start: 20080301, end: 20080714
  3. UFT [Concomitant]
     Indication: BILE DUCT CANCER RECURRENT
     Dosage: UNK, 3/D
     Route: 048
     Dates: start: 20060503, end: 20060101
  4. UFT [Concomitant]
     Dosage: 300 MG, DAILY (1/D)
     Route: 048
     Dates: start: 20060927, end: 20061024
  5. UFT [Concomitant]
     Dosage: 200 MG, DAILY (1/D)
     Route: 048
     Dates: start: 20061025, end: 20080206
  6. SELBEX [Concomitant]
     Indication: GASTRITIS PROPHYLAXIS
     Dosage: 150 MG, DAILY (1/D)
     Route: 048
     Dates: start: 20060506, end: 20081002
  7. HARNAL [Concomitant]
     Indication: BENIGN PROSTATIC HYPERPLASIA
     Dosage: 0.2 MG, DAILY (1/D)
     Route: 048
     Dates: start: 20060506, end: 20081002
  8. FOIPAN [Concomitant]
     Indication: REFLUX OESOPHAGITIS
     Dosage: 300 MG, DAILY (1/D)
     Route: 048
     Dates: start: 20060506, end: 20081002

REACTIONS (7)
  - CARDIAC FAILURE [None]
  - CELLULITIS [None]
  - GANGRENE [None]
  - HYDRONEPHROSIS [None]
  - PERICARDIAL EFFUSION [None]
  - PLEURAL EFFUSION [None]
  - RENAL IMPAIRMENT [None]
